FAERS Safety Report 8812129 (Version 1)
Quarter: 2012Q4

REPORT INFORMATION
  Report Type: 
  Country: US (occurrence: US)
  Receive Date: 20120927
  Receipt Date: 20120927
  Transmission Date: 20130627
  Serious: No
  Sender: FDA-Public Use
  Company Number: US-ASTRAZENECA-2012SE33750

PATIENT
  Age: 76 Year
  Sex: Female
  Weight: 63 kg

DRUGS (3)
  1. PULMICORT FLEXHALER [Suspect]
     Indication: CHRONIC OBSTRUCTIVE PULMONARY DISEASE
     Dosage: TWO PUFF, AT NIGHT
     Route: 055
  2. USING OXYGEN FULL TIME [Concomitant]
  3. CONCOMITTANT MED [Concomitant]

REACTIONS (2)
  - Oxygen saturation decreased [Unknown]
  - Off label use [Unknown]
